FAERS Safety Report 16802876 (Version 2)
Quarter: 2019Q3

REPORT INFORMATION
  Report Type: Spontaneous
  Country: BG (occurrence: BG)
  Receive Date: 20190913
  Receipt Date: 20190913
  Transmission Date: 20191005
  Serious: Yes (Hospitalization, Other)
  Sender: FDA-Public Use
  Company Number: PHHY2019BG171876

PATIENT
  Age: 60 Year
  Sex: Female

DRUGS (16)
  1. RAMIPRIL. [Suspect]
     Active Substance: RAMIPRIL
     Indication: CARDIAC FAILURE
     Dosage: 1 DF, BID (2X1TABLET)
     Route: 048
     Dates: start: 201903
  2. CYCLOPHOSPHAMIDE. [Suspect]
     Active Substance: CYCLOPHOSPHAMIDE
     Indication: MYELOID LEUKAEMIA
     Dosage: UNK
     Route: 065
  3. PANTOPRAZOLE [Concomitant]
     Active Substance: PANTOPRAZOLE
     Indication: CARDIOTOXICITY
     Dosage: 1 DF, BID (2X1TABLET)
     Route: 048
     Dates: start: 201903
  4. PANTOPRAZOLE [Concomitant]
     Active Substance: PANTOPRAZOLE
     Dosage: 20 MG, BID
     Route: 065
  5. BISOPROLOL [Suspect]
     Active Substance: BISOPROLOL
     Indication: CARDIAC FAILURE
     Dosage: 2.5 MG, QD
     Route: 048
     Dates: start: 201903
  6. SPIRONOLACTONE. [Concomitant]
     Active Substance: SPIRONOLACTONE
     Indication: CARDIOTOXICITY
     Dosage: 1 DF, BID (2X1 TABLET)
     Route: 048
     Dates: start: 201903
  7. URSODEOXYCHOLIC ACID [Concomitant]
     Active Substance: URSODIOL
     Dosage: 250 MG, BID
     Route: 065
  8. ACYCLOVIR. [Concomitant]
     Active Substance: ACYCLOVIR
     Dosage: 400 MG, TID
     Route: 065
  9. RAMIPRIL. [Suspect]
     Active Substance: RAMIPRIL
     Dosage: 5 MG, BID
     Route: 065
  10. TRIMETAZIDINE [Concomitant]
     Active Substance: TRIMETAZIDINE
     Indication: CARDIOTOXICITY
     Dosage: 1 DF, BID (2X1 TABLET)
     Route: 048
     Dates: start: 201903
  11. METHYLPREDNISOLONE. [Concomitant]
     Active Substance: METHYLPREDNISOLONE
     Indication: CARDIOTOXICITY
     Dosage: 16 MG, QD
     Route: 048
     Dates: start: 201903
  12. MYCOPHENOLATE MOFETIL. [Suspect]
     Active Substance: MYCOPHENOLATE MOFETIL
     Dosage: 500 MG, TID
     Route: 065
  13. URSODEOXYCHOLIC ACID [Concomitant]
     Active Substance: URSODIOL
     Indication: CARDIOTOXICITY
     Dosage: 1 DF, BID (2X1 TABLET)
     Route: 048
     Dates: start: 201903
  14. ACYCLOVIR. [Concomitant]
     Active Substance: ACYCLOVIR
     Indication: CARDIOTOXICITY
     Dosage: 1 DF, TID (3X1TABLET)
     Route: 048
     Dates: start: 201903
  15. AMLODIPINE [Suspect]
     Active Substance: AMLODIPINE BESYLATE
     Indication: CARDIOTOXICITY
     Dosage: 1 DF, BID (2X1 TABLET)
     Route: 048
     Dates: start: 201903
  16. MYCOPHENOLATE MOFETIL. [Suspect]
     Active Substance: MYCOPHENOLATE MOFETIL
     Indication: MYELOID LEUKAEMIA
     Dosage: 2 DF, TID (3X2TABLETS)
     Route: 048

REACTIONS (13)
  - Peripheral swelling [Recovering/Resolving]
  - Joint swelling [Recovering/Resolving]
  - Tricuspid valve incompetence [Recovered/Resolved]
  - Fatigue [Recovering/Resolving]
  - General physical health deterioration [Recovering/Resolving]
  - Pulmonary hypertension [Recovering/Resolving]
  - Cardiac failure [Recovering/Resolving]
  - Dyspnoea [Recovered/Resolved]
  - Rales [Recovering/Resolving]
  - Cardiotoxicity [Recovering/Resolving]
  - Mitral valve incompetence [Recovering/Resolving]
  - Drug ineffective [Unknown]
  - Off label use [Unknown]

NARRATIVE: CASE EVENT DATE: 201903
